FAERS Safety Report 13357455 (Version 1)
Quarter: 2017Q1

REPORT INFORMATION
  Report Type: Spontaneous
  Country: US (occurrence: US)
  Receive Date: 20170320
  Receipt Date: 20170320
  Transmission Date: 20170429
  Serious: Yes (Death)
  Sender: FDA-Public Use
  Company Number: None

PATIENT
  Age: 74 Year
  Sex: Male

DRUGS (1)
  1. STIVARGA [Suspect]
     Active Substance: REGORAFENIB
     Indication: COLON CANCER
     Dosage: QD FOR 21 DAYS
     Route: 048
     Dates: start: 20170119, end: 20170311

REACTIONS (1)
  - Malignant neoplasm progression [None]

NARRATIVE: CASE EVENT DATE: 20170311
